FAERS Safety Report 6390390-5 (Version None)
Quarter: 2009Q4

REPORT INFORMATION
  Report Type: 
  Country: None (occurrence: None)
  Receive Date: 20091006
  Receipt Date: 20091002
  Transmission Date: 20100525
  Serious: Yes (Hospitalization)
  Sender: FDA-Public Use
  Company Number: CHNY2009DE02615

PATIENT

DRUGS (1)
  1. OTRIVIN [Suspect]
     Dosage: 0.6 ML, QD
     Dates: start: 20090626, end: 20090626

REACTIONS (4)
  - BRADYCARDIA [None]
  - INCORRECT ROUTE OF DRUG ADMINISTRATION [None]
  - SINUS ARRHYTHMIA [None]
  - TACHYCARDIA [None]
